FAERS Safety Report 14847366 (Version 18)
Quarter: 2022Q1

REPORT INFORMATION
  Report Type: Spontaneous
  Country: DE (occurrence: DE)
  Receive Date: 20180504
  Receipt Date: 20220309
  Transmission Date: 20220423
  Serious: Yes (Hospitalization)
  Sender: FDA-Public Use
  Company Number: None

PATIENT
  Age: 62 Year
  Sex: Female
  Weight: 45 kg

DRUGS (86)
  1. SIMVASTATIN [Interacting]
     Active Substance: SIMVASTATIN
     Indication: Product used for unknown indication
     Dosage: 40 MILLIGRAM, ONCE A DAY  (0-0-1-0)
     Route: 048
  2. EZETIMIBE [Interacting]
     Active Substance: EZETIMIBE
     Indication: Product used for unknown indication
     Dosage: 10 MILLIGRAM, ONCE A DAY (1-0-0-0)
     Route: 048
  3. PANTOPRAZOLE [Suspect]
     Active Substance: PANTOPRAZOLE
     Indication: Product used for unknown indication
     Dosage: 40 MILLIGRAM, ONCE A DAY, (1-0-0-0)
     Route: 048
  4. ALUMINUM HYDROXIDE\MAGNESIUM CARBONATE [Interacting]
     Active Substance: ALUMINUM HYDROXIDE\MAGNESIUM CARBONATE
     Indication: Product used for unknown indication
     Dosage: 2 DOSAGE FORM, ONCE A DAY
     Route: 048
  5. BENSERAZIDE HYDROCHLORIDE [Suspect]
     Active Substance: BENSERAZIDE HYDROCHLORIDE
     Indication: Product used for unknown indication
     Dosage: 100 MILLIGRAM (1-0-2.5-0)
     Route: 048
  6. BENSERAZIDE HYDROCHLORIDE [Suspect]
     Active Substance: BENSERAZIDE HYDROCHLORIDE
     Dosage: UNK
     Route: 048
  7. BENSERAZIDE HYDROCHLORIDE [Suspect]
     Active Substance: BENSERAZIDE HYDROCHLORIDE
     Dosage: 200 MILLIGRAM, TWO TIMES A DAY
     Route: 048
  8. BENSERAZIDE HYDROCHLORIDE [Suspect]
     Active Substance: BENSERAZIDE HYDROCHLORIDE
     Dosage: 100 MILLIGRAM, TWO TIMES A DAY
     Route: 048
  9. FENTANYL [Suspect]
     Active Substance: FENTANYL
     Indication: Product used for unknown indication
     Dosage: 50 MICROGRAM, ONCE A DAY,QD
     Route: 048
  10. FUROSEMIDE [Interacting]
     Active Substance: FUROSEMIDE
     Indication: Product used for unknown indication
     Dosage: 40 MILLIGRAM, 4-0-0-0(160.0 MILLIGRAM(S) (40 MILLIGRAM(S)),1 IN 6 HOUR )
     Route: 048
  11. FUROSEMIDE [Interacting]
     Active Substance: FUROSEMIDE
     Dosage: 160 MILLIGRAM, ONCE A DAY,QD
     Route: 048
  12. FUROSEMIDE [Interacting]
     Active Substance: FUROSEMIDE
     Dosage: 40 MILLIGRAM, FOUR TIMES/DAY
     Route: 048
  13. HYDROCHLOROTHIAZIDE [Suspect]
     Active Substance: HYDROCHLOROTHIAZIDE
     Indication: Product used for unknown indication
     Dosage: 25 MILLIGRAM, ONCE A DAY,(1-0-0-0)
     Route: 048
  14. AZATHIOPRINE [Interacting]
     Active Substance: AZATHIOPRINE
     Indication: Product used for unknown indication
     Dosage: 50 MILLIGRAM, ONCE A DAY,QD
     Route: 048
  15. CITRIC ACID MONOHYDRATE\POTASSIUM BICARBONATE\POTASSIUM CITRATE [Interacting]
     Active Substance: CITRIC ACID MONOHYDRATE\POTASSIUM BICARBONATE\POTASSIUM CITRATE
     Indication: Product used for unknown indication
     Dosage: 100 MILLIGRAM, ONCE A DAY,(1-0-0-0)
     Route: 048
  16. LACTULOSE [Interacting]
     Active Substance: LACTULOSE
     Indication: Product used for unknown indication
     Dosage: 1 DOSAGE FORM, ONCE A DAY, 1 DF, QD, 1 MEASURING CUP
     Route: 048
  17. BENSERAZIDE\LEVODOPA [Suspect]
     Active Substance: BENSERAZIDE\LEVODOPA
     Indication: Product used for unknown indication
     Dosage: 100 MILLIGRAM, ONCE A DAY (1-0-2.5-0)
     Route: 048
  18. BENSERAZIDE\LEVODOPA [Suspect]
     Active Substance: BENSERAZIDE\LEVODOPA
     Dosage: 1 DOSAGE FORM, ONCE A DAY
     Route: 055
  19. BENSERAZIDE\LEVODOPA [Suspect]
     Active Substance: BENSERAZIDE\LEVODOPA
     Dosage: 100 MILLIGRAM, TWO TIMES A DAY
     Route: 048
  20. BENSERAZIDE\LEVODOPA [Suspect]
     Active Substance: BENSERAZIDE\LEVODOPA
     Dosage: 200 MILLIGRAM, TWO TIMES A DAY
     Route: 048
  21. AMBROXOL HYDROCHLORIDE [Interacting]
     Active Substance: AMBROXOL HYDROCHLORIDE
     Indication: Product used for unknown indication
     Dosage: 30 DROP, PRN ; AS NECESSARY
     Route: 048
  22. MAGNESIUM [Interacting]
     Active Substance: MAGNESIUM
     Indication: Product used for unknown indication
     Dosage: 1 DOSAGE FORM, ONCE A DAY 2 OT, QD (2-0-0-0)
     Route: 048
  23. MAGNESIUM [Interacting]
     Active Substance: MAGNESIUM
     Dosage: 2 DOSAGE FORM, ONCE A DAY
     Route: 048
  24. MAGNESIUM [Interacting]
     Active Substance: MAGNESIUM
     Dosage: UNK, TWO TIMES A DAY
     Route: 048
  25. MAGNESIUM CITRATE\PYRIDOXINE [Interacting]
     Active Substance: MAGNESIUM CITRATE\PYRIDOXINE
     Indication: Product used for unknown indication
     Dosage: UNK, TWO TIMES A DAY
     Route: 048
  26. MAGNESIUM CITRATE\PYRIDOXINE [Interacting]
     Active Substance: MAGNESIUM CITRATE\PYRIDOXINE
     Dosage: UNK, ONCE A DAY 2 UNK, QD
     Route: 048
  27. MAGNESIUM CITRATE\PYRIDOXINE [Interacting]
     Active Substance: MAGNESIUM CITRATE\PYRIDOXINE
     Dosage: 1 DOSAGE FORM, ONCE A DAY
     Route: 048
  28. MAGNESIUM CITRATE\PYRIDOXINE [Interacting]
     Active Substance: MAGNESIUM CITRATE\PYRIDOXINE
     Dosage: 2 DOSAGE FORM, ONCE A DAY
     Route: 048
  29. MAGNESIUM CITRATE\PYRIDOXINE [Interacting]
     Active Substance: MAGNESIUM CITRATE\PYRIDOXINE
     Dosage: 3 TIMES A DAY (1 IN 8 HOUR )
     Route: 048
  30. MAGNESIUM CITRATE [Interacting]
     Active Substance: MAGNESIUM CITRATE
     Indication: Product used for unknown indication
     Dosage: 2 UNK, QD
     Route: 048
  31. MAGNESIUM CITRATE [Interacting]
     Active Substance: MAGNESIUM CITRATE
     Dosage: 1 DF, QD
     Route: 048
  32. MAGNESIUM [Suspect]
     Active Substance: MAGNESIUM
     Indication: Product used for unknown indication
     Dosage: 2 DOSAGE FORM, ONCE A DAY (2-0-0-0)
     Route: 048
  33. MAGNESIUM [Suspect]
     Active Substance: MAGNESIUM
     Dosage: 2 DOSAGE FORM, TWO TIMES A DAY
     Route: 048
  34. MAGNESIUM OXIDE [Interacting]
     Active Substance: MAGNESIUM OXIDE
     Indication: Product used for unknown indication
     Dosage: 1 DOSAGE FORM, ONCE A DAY
     Route: 048
  35. METAMIZOLE SODIUM [Suspect]
     Active Substance: METAMIZOLE SODIUM
     Indication: Product used for unknown indication
     Dosage: 30 GTT, 3 TIMES A DAY (TID)
     Route: 048
  36. METAMIZOLE SODIUM [Suspect]
     Active Substance: METAMIZOLE SODIUM
     Dosage: 90.0 DROP(S) (30 DROP(S)),1 IN 8 HOUR
     Route: 048
  37. MANGANESE SULFATE [Interacting]
     Active Substance: MANGANESE SULFATE
     Indication: Product used for unknown indication
     Dosage: 1 DOSAGE FORM, ONCE A DAY
     Route: 048
  38. NOVALGIN (METAMIZOLE SODIUM) [Suspect]
     Active Substance: METAMIZOLE SODIUM
     Indication: Product used for unknown indication
     Dosage: 30 GTT DROPS, 3 TIMES A DAY
     Route: 048
  39. NOVALGIN (METAMIZOLE SODIUM) [Suspect]
     Active Substance: METAMIZOLE SODIUM
     Dosage: UNK, 3 TIMES A DAY ((30 DROP(S)) IN 8 HOUR )
     Route: 048
  40. ACETAMINOPHEN [Suspect]
     Active Substance: ACETAMINOPHEN
     Indication: Product used for unknown indication
     Dosage: 1 DOSAGE FORM, ONCE A DAY
     Route: 048
  41. ACETAMINOPHEN [Suspect]
     Active Substance: ACETAMINOPHEN
     Dosage: 90 DOSAGE FORM, ONCE A DAY
     Route: 048
  42. ACETAMINOPHEN [Suspect]
     Active Substance: ACETAMINOPHEN
     Dosage: 30 GTT DROPS, 3 TIMES A DAY
     Route: 048
  43. ACETAMINOPHEN [Suspect]
     Active Substance: ACETAMINOPHEN
     Dosage: 1 DOSAGE FORM, ONCE A DAY
     Route: 048
  44. ACETAMINOPHEN [Suspect]
     Active Substance: ACETAMINOPHEN
     Dosage: 3 DOSAGE FORM, 3 TIMES A DAY
     Route: 048
  45. ACETAMINOPHEN\PENTAZOCINE HYDROCHLORIDE [Interacting]
     Active Substance: ACETAMINOPHEN\PENTAZOCINE HYDROCHLORIDE
     Indication: Product used for unknown indication
     Dosage: 90 DF, QD, UNIT DOSE: 30 DROPS
     Route: 048
  46. ACETAMINOPHEN\PENTAZOCINE HYDROCHLORIDE [Interacting]
     Active Substance: ACETAMINOPHEN\PENTAZOCINE HYDROCHLORIDE
     Dosage: 30 GTT, 3 TIMES A DAY
     Route: 048
  47. ACETAMINOPHEN\PENTAZOCINE HYDROCHLORIDE [Interacting]
     Active Substance: ACETAMINOPHEN\PENTAZOCINE HYDROCHLORIDE
     Dosage: 1 DOSAGE FORM, ONCE A DAY
     Route: 048
  48. ACETAMINOPHEN\PENTAZOCINE HYDROCHLORIDE [Interacting]
     Active Substance: ACETAMINOPHEN\PENTAZOCINE HYDROCHLORIDE
     Dosage: 3 TIMES A DAY((30 DROP(S)) IN 8 HOUR )
     Route: 048
  49. PANTOZOL [Interacting]
     Active Substance: PANTOPRAZOLE SODIUM
     Indication: Product used for unknown indication
     Dosage: 40 MG, QD (1-0-0-0)
     Route: 048
  50. PENTAZOCINE HYDROCHLORIDE [Suspect]
     Active Substance: PENTAZOCINE HYDROCHLORIDE
     Indication: Product used for unknown indication
     Dosage: 30 GTT DROPS, 3 TIMES A DAY
     Route: 048
  51. PENTAZOCINE HYDROCHLORIDE [Suspect]
     Active Substance: PENTAZOCINE HYDROCHLORIDE
     Dosage: 1 DOSAGE FORM, ONCE A DAY
     Route: 048
  52. PENTAZOCINE HYDROCHLORIDE [Suspect]
     Active Substance: PENTAZOCINE HYDROCHLORIDE
     Dosage: 90 DF, QD
     Route: 048
  53. PENTAZOCINE HYDROCHLORIDE [Suspect]
     Active Substance: PENTAZOCINE HYDROCHLORIDE
     Dosage: UNK, 3 TIMES A DAY
     Route: 065
  54. PENTAZOCINE HYDROCHLORIDE [Suspect]
     Active Substance: PENTAZOCINE HYDROCHLORIDE
     Dosage: UNK, ONCE A DAY (90 DOSAGE FORM) IN 1 DAY )
  55. PYRIDOXINE HYDROCHLORIDE [Interacting]
     Active Substance: PYRIDOXINE HYDROCHLORIDE
     Indication: Product used for unknown indication
     Dosage: 1 DOSAGE FORM, ONCE A DAY
     Route: 048
  56. RAPAMUNE [Suspect]
     Active Substance: SIROLIMUS
     Indication: Product used for unknown indication
     Dosage: 1 MILLIGRAM, ONCE A DAY (1 MG, QD (1-0-0-0)
     Route: 048
  57. RAPAMUNE [Suspect]
     Active Substance: SIROLIMUS
     Dosage: UNK
     Route: 048
  58. SPIRONOLACTONE [Suspect]
     Active Substance: SPIRONOLACTONE
     Indication: Product used for unknown indication
     Dosage: 100 MILLIGRAM, ONCE A DAY
     Route: 048
  59. SPIRONOLACTONE [Suspect]
     Active Substance: SPIRONOLACTONE
     Dosage: 200 MILLIGRAM, TWO TIMES A DAY
     Route: 048
  60. SPIRONOLACTONE [Suspect]
     Active Substance: SPIRONOLACTONE
     Dosage: 2 DOSAGE FORM, ONCE A DAY
     Route: 048
  61. SPIRONOLACTONE [Suspect]
     Active Substance: SPIRONOLACTONE
     Dosage: 100 MILLIGRAM, TWO TIMES A DAY
     Route: 048
  62. SPIRIVA [Suspect]
     Active Substance: TIOTROPIUM BROMIDE MONOHYDRATE
     Indication: Product used for unknown indication
     Dosage: 18 MICROGRAM, TWO TIMES A DAY, 12 HOUR (1-0-1-0)
     Route: 055
  63. URSODIOL [Suspect]
     Active Substance: URSODIOL
     Indication: Product used for unknown indication
     Dosage: 500 MILLIGRAM, TWO TIMES A DAY
     Route: 048
  64. URSODIOL [Suspect]
     Active Substance: URSODIOL
     Dosage: 1000 MILLIGRAM, TWO TIMES A DAY
     Route: 048
  65. CHOLECALCIFEROL [Suspect]
     Active Substance: CHOLECALCIFEROL
     Indication: Product used for unknown indication
     Dosage: 100 INTERNATIONAL UNIT, ONCE A DAY
     Route: 048
  66. CHOLECALCIFEROL [Suspect]
     Active Substance: CHOLECALCIFEROL
     Dosage: 1 DOSAGE FORM
     Route: 065
  67. FLUTICASONE PROPIONATE\SALMETEROL XINAFOATE [Suspect]
     Active Substance: FLUTICASONE PROPIONATE\SALMETEROL XINAFOATE
     Indication: Product used for unknown indication
     Dosage: 2 DOSAGE FORM, ONCE A DAY (50|500 ?G, 1-0-1-0), 2 DF, QD, 50|500 ?G
     Route: 055
  68. FLUTICASONE PROPIONATE\SALMETEROL XINAFOATE [Suspect]
     Active Substance: FLUTICASONE PROPIONATE\SALMETEROL XINAFOATE
     Dosage: 1 DOSAGE FORM, ONCE A DAY
     Route: 055
  69. MAGNESIUM [Suspect]
     Active Substance: MAGNESIUM
     Indication: Product used for unknown indication
     Dosage: 2 DOSAGE FORM, ONCE A DAY
     Route: 048
  70. ACETAMINOPHEN\CAFFEINE\PHENYLEPHRINE HYDROCHLORIDE [Suspect]
     Active Substance: ACETAMINOPHEN\CAFFEINE\PHENYLEPHRINE HYDROCHLORIDE
     Indication: Product used for unknown indication
     Dosage: UNK, 3 TIMES A DAY
     Route: 048
  71. ACETAMINOPHEN\CAFFEINE\PHENYLEPHRINE HYDROCHLORIDE [Suspect]
     Active Substance: ACETAMINOPHEN\CAFFEINE\PHENYLEPHRINE HYDROCHLORIDE
     Dosage: 30 DROP, 3 TIMES A DAY
     Route: 048
  72. ACETAMINOPHEN\CAFFEINE\PROPYPHENAZONE [Suspect]
     Active Substance: ACETAMINOPHEN\CAFFEINE\PROPYPHENAZONE
     Indication: Product used for unknown indication
     Dosage: 30 DROP, 3 TIMES A DAY
     Route: 048
  73. ACETAMINOPHEN\CAFFEINE\PROPYPHENAZONE [Suspect]
     Active Substance: ACETAMINOPHEN\CAFFEINE\PROPYPHENAZONE
     Dosage: 3 TIMES A DAY (30 DROP(S)) IN 8 HOUR)
     Route: 048
  74. FLUTICASONE PROPIONATE\SALMETEROL XINAFOATE [Suspect]
     Active Substance: FLUTICASONE PROPIONATE\SALMETEROL XINAFOATE
     Indication: Product used for unknown indication
     Dosage: 1 DOSAGE FORM, ONCE A DAY
     Route: 055
  75. FLUTICASONE PROPIONATE\SALMETEROL XINAFOATE [Suspect]
     Active Substance: FLUTICASONE PROPIONATE\SALMETEROL XINAFOATE
     Dosage: 2 DOSAGE FORM
     Route: 065
  76. CHOLECALCIFEROL [Suspect]
     Active Substance: CHOLECALCIFEROL
     Indication: Product used for unknown indication
     Dosage: 1 DOSAGE FORM, ONCE A DAY
     Route: 048
  77. CHOLECALCIFEROL [Suspect]
     Active Substance: CHOLECALCIFEROL
     Dosage: ONCE A DAY (100 UNK, QD )
     Route: 048
  78. CHOLECALCIFEROL [Suspect]
     Active Substance: CHOLECALCIFEROL
     Dosage: 100 INTERNATIONAL UNIT,ONCE A DAY
     Route: 048
  79. TIOTROPIUM BROMIDE [Suspect]
     Active Substance: TIOTROPIUM BROMIDE
     Indication: Product used for unknown indication
     Dosage: 2 DOSAGE FORM, ONCE A DAY
     Route: 055
  80. TIOTROPIUM BROMIDE [Suspect]
     Active Substance: TIOTROPIUM BROMIDE
     Dosage: 36 MICROGRAM, ONCE A DAY
     Route: 055
  81. TIOTROPIUM BROMIDE [Suspect]
     Active Substance: TIOTROPIUM BROMIDE
     Dosage: UNK
     Route: 055
  82. TIOTROPIUM BROMIDE [Suspect]
     Active Substance: TIOTROPIUM BROMIDE
     Dosage: 36 MICROGRAM, TWO TIMES A DAY
     Route: 055
  83. TIOTROPIUM BROMIDE [Suspect]
     Active Substance: TIOTROPIUM BROMIDE
     Dosage: 1 DOSAGE FORM, ONCE A DAY
     Route: 055
  84. TIOTROPIUM BROMIDE [Suspect]
     Active Substance: TIOTROPIUM BROMIDE
     Dosage: 18 MICROGRAM, TWO TIMES A DAY
     Route: 055
  85. FUROSEMIDE [Concomitant]
     Active Substance: FUROSEMIDE
     Indication: Product used for unknown indication
     Dosage: 160 MILLIGRAM, ONCE A DAY
     Route: 048
  86. AZATHIOPRINE [Suspect]
     Active Substance: AZATHIOPRINE
     Indication: Product used for unknown indication
     Dosage: 50 MILLIGRAM, ONCE A DAY
     Route: 048

REACTIONS (3)
  - General physical health deterioration [Unknown]
  - Product prescribing error [Unknown]
  - Drug interaction [Unknown]

NARRATIVE: CASE EVENT DATE: 20150916
